FAERS Safety Report 12141972 (Version 1)
Quarter: 2016Q1

REPORT INFORMATION
  Report Type: Spontaneous
  Country: FR (occurrence: FR)
  Receive Date: 20160303
  Receipt Date: 20160303
  Transmission Date: 20160526
  Serious: Yes (Hospitalization)
  Sender: FDA-Public Use
  Company Number: FR-PFIZER INC-2016131762

PATIENT
  Age: 72 Year
  Sex: Male

DRUGS (1)
  1. ZOLOFT [Suspect]
     Active Substance: SERTRALINE HYDROCHLORIDE
     Dosage: 50 MG, UNK

REACTIONS (5)
  - Abdominal pain upper [Unknown]
  - Cholangiolitis [Unknown]
  - Bile duct stone [Unknown]
  - Hepatitis [Unknown]
  - Cholelithiasis [Unknown]
